FAERS Safety Report 8435690 (Version 2)
Quarter: 2013Q3

REPORT INFORMATION
  Report Type: Spontaneous
  Country: US (occurrence: US)
  Receive Date: 20120301
  Receipt Date: 20130819
  Transmission Date: 20140515
  Serious: Yes (Other)
  Sender: FDA-Public Use
  Company Number: US-JNJFOC-20110301709

PATIENT
  Age: 45 Year
  Sex: Female
  Weight: 117.03 kg

DRUGS (12)
  1. REMICADE [Suspect]
     Indication: RHEUMATOID ARTHRITIS
     Route: 042
  2. REMICADE [Suspect]
     Indication: RHEUMATOID ARTHRITIS
     Route: 042
     Dates: start: 20110228
  3. REMICADE [Suspect]
     Indication: RHEUMATOID ARTHRITIS
     Route: 042
     Dates: start: 20071113
  4. NEXIUM [Concomitant]
     Route: 065
  5. ACTOPLUS MET [Concomitant]
     Route: 065
  6. MTX [Concomitant]
     Route: 065
  7. VITAMIN B 12 [Concomitant]
     Route: 065
  8. NITROLINGUAL [Concomitant]
     Route: 065
  9. VENTOLIN [Concomitant]
     Route: 065
  10. ESTROVEN [Concomitant]
     Route: 065
  11. VICODIN [Concomitant]
     Route: 065
  12. BENADRYL [Concomitant]
     Indication: PREMEDICATION

REACTIONS (5)
  - Chest pain [Recovered/Resolved]
  - Mitral valve incompetence [Unknown]
  - Infusion related reaction [Recovered/Resolved]
  - Myocardial ischaemia [Unknown]
  - Aortic arteriosclerosis [Unknown]
